FAERS Safety Report 7932001-0 (Version None)
Quarter: 2011Q4

REPORT INFORMATION
  Report Type: 
  Country: None (occurrence: None)
  Receive Date: 20111121
  Receipt Date: 20111116
  Transmission Date: 20120403
  Serious: Yes (Hospitalization)
  Sender: FDA-Public Use
  Company Number: JP-ABBOTT-11P-087-0869319-00

PATIENT
  Sex: Male
  Weight: 35.6 kg

DRUGS (10)
  1. PREDNISOLONE [Concomitant]
     Indication: IMMUNOSUPPRESSANT DRUG THERAPY
     Route: 048
     Dates: start: 20060906
  2. MIZORIBINE [Concomitant]
     Indication: IMMUNOSUPPRESSANT DRUG THERAPY
     Route: 048
     Dates: start: 20070827
  3. PROGRAF [Suspect]
     Indication: RENAL TRANSPLANT
     Dates: start: 20110514
  4. BENZBROMARONE [Concomitant]
     Indication: HYPERURICAEMIA
     Route: 048
     Dates: start: 20080710, end: 20110512
  5. DIOVAN [Suspect]
     Indication: HYPERTENSION
     Route: 048
     Dates: start: 20110113, end: 20110512
  6. DIOVAN [Suspect]
     Indication: PROPHYLAXIS
     Route: 048
  7. MIZORIBINE [Concomitant]
     Indication: RENAL TRANSPLANT
  8. PREDNISOLONE [Concomitant]
     Indication: RENAL TRANSPLANT
  9. CLARITHROMYCIN [Suspect]
     Indication: COUGH
     Dates: start: 20110501, end: 20110512
  10. PROGRAF [Suspect]
     Indication: IMMUNOSUPPRESSANT DRUG THERAPY
     Dates: start: 20060913, end: 20110512

REACTIONS (1)
  - RENAL FAILURE ACUTE [None]
